FAERS Safety Report 7341965-8 (Version None)
Quarter: 2011Q1

REPORT INFORMATION
  Report Type: 
  Country: None (occurrence: None)
  Receive Date: 20110309
  Receipt Date: 20110225
  Transmission Date: 20110831
  Serious: Yes (Hospitalization, Other)
  Sender: FDA-Public Use
  Company Number: JP-PFIZER INC-2011049545

PATIENT
  Age: 71 Year
  Sex: Male

DRUGS (10)
  1. PANALDINE [Concomitant]
     Indication: PROPHYLAXIS
     Dosage: UNK
     Route: 048
  2. AMOBAN [Concomitant]
     Indication: INSOMNIA
     Dosage: UNK
     Route: 048
  3. SYMMETREL [Concomitant]
     Indication: PARKINSON'S DISEASE
     Dosage: UNK
     Route: 048
     Dates: start: 20060101
  4. AMLODIPINE [Suspect]
     Indication: HYPERTENSION
     Dosage: UNK
     Route: 048
     Dates: end: 20080513
  5. PURSENNID [Concomitant]
     Indication: CONSTIPATION
     Dosage: UNK
     Route: 048
  6. PRAMIPEXOLE HYDROCHLORIDE MONOHYDRATE [Concomitant]
     Indication: PARKINSON'S DISEASE
     Dosage: UNK
     Route: 048
     Dates: start: 20060101, end: 20090910
  7. LANDEL [Concomitant]
     Indication: HYPERTENSION
     Dosage: UNK
     Route: 048
  8. ATELEC [Concomitant]
     Indication: HYPERTENSION
     Dosage: UNK
     Route: 048
  9. BLOPRESS [Concomitant]
     Indication: HYPERTENSION
     Dosage: UNK
     Route: 048
  10. ASPIRIN [Concomitant]
     Indication: HYPERTENSION
     Dosage: UNK
     Route: 048

REACTIONS (1)
  - PARKINSONISM [None]
